FAERS Safety Report 7312672-2 (Version None)
Quarter: 2011Q1

REPORT INFORMATION
  Report Type: 
  Country: None (occurrence: None)
  Receive Date: 20110224
  Receipt Date: 20110105
  Transmission Date: 20110831
  Serious: No
  Sender: FDA-Public Use
  Company Number: US-ASTRAZENECA-2011SE00673

PATIENT
  Age: 53 Year
  Sex: Female
  Weight: 95.3 kg

DRUGS (10)
  1. SYNTHROID [Concomitant]
  2. SYMBALTA [Concomitant]
  3. FLEXERIL [Concomitant]
  4. ZOCOR [Concomitant]
  5. ASA [Concomitant]
  6. ANGELIC [Concomitant]
  7. VIMOVO [Suspect]
     Indication: PAIN
     Dosage: 500 MG/20 MG TWO TIMES A DAY
     Route: 048
  8. LEVADOPA [Concomitant]
  9. KLONOPIN [Concomitant]
  10. XANAX [Concomitant]

REACTIONS (2)
  - BRONCHITIS [None]
  - GASTROOESOPHAGEAL REFLUX DISEASE [None]
